FAERS Safety Report 10650410 (Version 1)
Quarter: 2014Q4

REPORT INFORMATION
  Report Type: Spontaneous
  Country: US (occurrence: US)
  Receive Date: 20141213
  Receipt Date: 20141213
  Transmission Date: 20150529
  Serious: No
  Sender: FDA-Public Use
  Company Number: US-BAUSCH-SYM-2014-24217

PATIENT
  Sex: Female
  Weight: 59.02 kg

DRUGS (2)
  1. XENAZINE [Suspect]
     Active Substance: TETRABENAZINE
     Indication: DYSKINESIA
     Dosage: 12.5MG ? TABLET IN THE MORNING AND ? TABLET IN THE EVENING
     Route: 048
     Dates: start: 20140613
  2. XENAZINE [Suspect]
     Active Substance: TETRABENAZINE
     Route: 048
     Dates: end: 20140716

REACTIONS (4)
  - Gait disturbance [Recovering/Resolving]
  - Drug administration error [Recovered/Resolved]
  - Intentional product use issue [Recovered/Resolved]
  - Fatigue [Recovering/Resolving]

NARRATIVE: CASE EVENT DATE: 2014
